FAERS Safety Report 24388982 (Version 1)
Quarter: 2024Q4

REPORT INFORMATION
  Report Type: Report from Study
  Country: US (occurrence: US)
  Receive Date: 20241002
  Receipt Date: 20241002
  Transmission Date: 20250115
  Serious: No
  Sender: LUNDBECK
  Company Number: US-LUNDBECK-DKLU4003518

PATIENT

DRUGS (1)
  1. VYEPTI [Suspect]
     Active Substance: EPTINEZUMAB-JJMR
     Indication: Migraine
     Dosage: 100 MILLIGRAM
     Route: 041
     Dates: start: 20240821

REACTIONS (8)
  - Feeling abnormal [Unknown]
  - Therapeutic response delayed [Unknown]
  - Headache [Unknown]
  - Pruritus [Recovering/Resolving]
  - Disorientation [Unknown]
  - Brain fog [Unknown]
  - Fatigue [Unknown]
  - Chest discomfort [Unknown]
